FAERS Safety Report 9302739 (Version 2)
Quarter: 2013Q2

REPORT INFORMATION
  Report Type: Spontaneous
  Country: BR (occurrence: BR)
  Receive Date: 20130522
  Receipt Date: 20130523
  Transmission Date: 20140414
  Serious: Yes (Hospitalization)
  Sender: FDA-Public Use
  Company Number: PHHY2013BR050365

PATIENT
  Age: 18 Year
  Sex: Male
  Weight: 60 kg

DRUGS (6)
  1. RITALIN [Suspect]
     Indication: AGITATION
     Dosage: 2 DF, DAILY
     Route: 048
  2. RITALIN [Suspect]
     Indication: OFF LABEL USE
     Dosage: 0.5 DF, DAILY
     Route: 048
     Dates: start: 20130517
  3. CARBAMAZEPINE [Concomitant]
     Indication: CONVULSION
     Dosage: 2 DF, DAILY
     Route: 048
  4. NEULEPTIL [Concomitant]
     Indication: SLEEP DISORDER
     Dosage: 3 DRP, DAILY
     Route: 048
  5. FENERGAN [Concomitant]
     Indication: PROPHYLAXIS
     Dosage: 2 DF, DAILY
     Route: 048
  6. CONCERTA [Concomitant]
     Dosage: UNK UKN, UNK
     Route: 065

REACTIONS (7)
  - Aggression [Recovering/Resolving]
  - Screaming [Recovered/Resolved]
  - Crying [Recovered/Resolved]
  - Injury [Recovering/Resolving]
  - Psychomotor hyperactivity [Recovering/Resolving]
  - Agitation [Recovering/Resolving]
  - Insomnia [Recovered/Resolved]
